FAERS Safety Report 11467297 (Version 2)
Quarter: 2015Q3

REPORT INFORMATION
  Report Type: Spontaneous
  Country: US (occurrence: None)
  Receive Date: 20150902
  Receipt Date: 20150928
  Transmission Date: 20151125
  Serious: Yes (Other)
  Sender: FDA-Public Use
  Company Number: 1713747-2015-999286

PATIENT
  Sex: Male
  Weight: 125 kg

DRUGS (12)
  1. RENEVELA (SEVELAMER CARBONATE) [Concomitant]
  2. MEDROL DOSEPAK (METHYPREDNISOLONE) [Concomitant]
  3. GENTAMICIN CREAM 0.1% [Concomitant]
  4. LIBERTY CYCLER [Concomitant]
     Active Substance: DEVICE
  5. DIALYVITE ULTRA D [Concomitant]
  6. NIFEDIPINE. [Concomitant]
     Active Substance: NIFEDIPINE
  7. LIBERTY CASSETTE [Concomitant]
  8. DELFLEX [Suspect]
     Active Substance: CALCIUM CHLORIDE\DEXTROSE MONOHYDRATE\MAGNESIUM CHLORIDE\SODIUM CHLORIDE\SODIUM LACTATE
     Indication: CHRONIC KIDNEY DISEASE
     Route: 033
  9. MINOXIDIL. [Concomitant]
     Active Substance: MINOXIDIL
  10. CARVEDILOL. [Concomitant]
     Active Substance: CARVEDILOL
  11. ULORIC [Concomitant]
     Active Substance: FEBUXOSTAT
  12. AURYXIA (FERRIC CITRATE) [Concomitant]

REACTIONS (2)
  - Umbilical hernia [None]
  - Oedema peripheral [None]

NARRATIVE: CASE EVENT DATE: 20150728
